FAERS Safety Report 8967244 (Version 1)
Quarter: 2012Q4

REPORT INFORMATION
  Report Type: 
  Country: DE (occurrence: DE)
  Receive Date: 20121217
  Receipt Date: 20121217
  Transmission Date: 20130627
  Serious: Yes (Hospitalization)
  Sender: FDA-Public Use
  Company Number: DE-AMGEN-DEUSP2012075522

PATIENT
  Age: 54 Year
  Sex: Female
  Weight: 49 kg

DRUGS (4)
  1. NEULASTA [Suspect]
     Indication: PRODUCT USED FOR UNKNOWN INDICATION
     Dosage: 1 pre-filled syringe, q3wk
     Route: 058
     Dates: start: 20120622, end: 20121212
  2. DOCETAXEL [Concomitant]
     Indication: CHEMOTHERAPY
     Dosage: 75 mg/m2, UNK
     Route: 042
     Dates: start: 20120621, end: 20121211
  3. CARBOPLATIN [Concomitant]
     Indication: CHEMOTHERAPY
     Dosage: (AUC 6)
     Route: 042
  4. HERCEPTIN [Concomitant]
     Indication: CHEMOTHERAPY
     Dosage: 6 mg/kg body weight, UNK
     Route: 042

REACTIONS (1)
  - Bone pain [Not Recovered/Not Resolved]
